FAERS Safety Report 11142642 (Version 2)
Quarter: 2015Q3

REPORT INFORMATION
  Report Type: Spontaneous
  Country: US (occurrence: US)
  Receive Date: 20150527
  Receipt Date: 20150722
  Transmission Date: 20151125
  Serious: No
  Sender: FDA-Public Use
  Company Number: US-GLAXOSMITHKLINE-US2015072001

PATIENT
  Sex: Male
  Weight: 110.66 kg

DRUGS (10)
  1. TANZEUM [Suspect]
     Active Substance: ALBIGLUTIDE
     Indication: TYPE 2 DIABETES MELLITUS
     Dosage: 30 MG, U
     Route: 058
     Dates: start: 20141024, end: 20150420
  2. ZYRTEC [Concomitant]
     Active Substance: CETIRIZINE HYDROCHLORIDE
  3. FISH OIL [Concomitant]
     Active Substance: FISH OIL
  4. SINGULAIR [Concomitant]
     Active Substance: MONTELUKAST SODIUM
  5. PRILOSEC [Concomitant]
     Active Substance: OMEPRAZOLE MAGNESIUM
  6. XARELTO [Concomitant]
     Active Substance: RIVAROXABAN
  7. METFORMIN [Concomitant]
     Active Substance: METFORMIN HYDROCHLORIDE
  8. LISINOPRIL. [Concomitant]
     Active Substance: LISINOPRIL
  9. VITAMIN D3 [Concomitant]
     Active Substance: CHOLECALCIFEROL
  10. ATORVASTATIN [Concomitant]
     Active Substance: ATORVASTATIN

REACTIONS (1)
  - Injection site rash [Recovered/Resolved]
